FAERS Safety Report 25583439 (Version 1)
Quarter: 2025Q3

REPORT INFORMATION
  Report Type: Spontaneous
  Country: GB (occurrence: GB)
  Receive Date: 20250721
  Receipt Date: 20250721
  Transmission Date: 20251021
  Serious: Yes (Other)
  Sender: AMGEN
  Company Number: GB-AMGEN-GBRSP2025142636

PATIENT
  Sex: Female

DRUGS (1)
  1. ARANESP [Suspect]
     Active Substance: DARBEPOETIN ALFA
     Indication: Peritoneal dialysis
     Dosage: 130 MICROGRAM, Q4WK
     Route: 058

REACTIONS (2)
  - Terminal state [Unknown]
  - Off label use [Unknown]
